FAERS Safety Report 5468403-4 (Version None)
Quarter: 2007Q3

REPORT INFORMATION
  Report Type: 
  Country: None (occurrence: None)
  Receive Date: 20070926
  Receipt Date: 20070917
  Transmission Date: 20080115
  Serious: Yes (Other)
  Sender: FDA-Public Use
  Company Number: US-ROCHE-489535

PATIENT
  Age: 45 Year
  Sex: Female

DRUGS (3)
  1. PEGASYS [Suspect]
     Indication: HEPATITIS C
     Route: 065
     Dates: start: 20060918, end: 20070201
  2. COPEGUS [Suspect]
     Indication: HEPATITIS C
     Route: 065
     Dates: start: 20060918, end: 20070201
  3. RIBAVIRIN (NON-ROCHE) [Suspect]
     Indication: DRUG USE FOR UNKNOWN INDICATION
     Route: 065

REACTIONS (9)
  - ABDOMINAL PAIN UPPER [None]
  - BONE PAIN [None]
  - DEPRESSION [None]
  - DRUG INEFFECTIVE [None]
  - GAIT DISTURBANCE [None]
  - INFLUENZA LIKE ILLNESS [None]
  - INTRACRANIAL ANEURYSM [None]
  - NAUSEA [None]
  - VIRAL LOAD INCREASED [None]
